FAERS Safety Report 11691943 (Version 1)
Quarter: 2015Q4

REPORT INFORMATION
  Report Type: Spontaneous
  Country: US (occurrence: US)
  Receive Date: 20151103
  Receipt Date: 20151103
  Transmission Date: 20160304
  Serious: No
  Sender: FDA-Public Use
  Company Number: US-ASTRAZENECA-2015SF04338

PATIENT

DRUGS (1)
  1. PRILOSEC OTC [Suspect]
     Active Substance: OMEPRAZOLE MAGNESIUM
     Dosage: EVERY DAY, EVENING
     Route: 048

REACTIONS (3)
  - Tongue discolouration [Unknown]
  - Product use issue [Unknown]
  - Tongue coated [Unknown]
